FAERS Safety Report 4750594-1 (Version None)
Quarter: 2005Q3

REPORT INFORMATION
  Report Type: 
  Country: None (occurrence: None)
  Receive Date: 20050823
  Receipt Date: 20050816
  Transmission Date: 20060218
  Serious: Yes (Congenital Anomaly)
  Sender: FDA-Public Use
  Company Number: US-ROCHE-414593

PATIENT
  Sex: Female

DRUGS (1)
  1. ACCUTANE [Suspect]
     Dates: start: 19830615, end: 19830615

REACTIONS (4)
  - CONGENITAL CEREBRAL CYST [None]
  - HEADACHE [None]
  - MATERNAL DRUGS AFFECTING FOETUS [None]
  - PREGNANCY [None]
